FAERS Safety Report 26187097 (Version 1)
Quarter: 2025Q4

REPORT INFORMATION
  Report Type: Spontaneous
  Country: US (occurrence: US)
  Receive Date: 20251222
  Receipt Date: 20251222
  Transmission Date: 20260118
  Serious: Yes (Other)
  Sender: DAIICHI
  Company Number: US-DSJP-DS-2025-184370-US

PATIENT
  Sex: Male

DRUGS (6)
  1. DATROWAY [Suspect]
     Active Substance: DATOPOTAMAB DERUXTECAN-DLNK
     Indication: Non-small cell lung cancer
     Dosage: UNK UNK, CYCLIC
     Route: 065
  2. DATROWAY [Suspect]
     Active Substance: DATOPOTAMAB DERUXTECAN-DLNK
     Indication: EGFR gene mutation
     Dosage: UNK UNK, CYCLIC
     Route: 065
  3. DATROWAY [Suspect]
     Active Substance: DATOPOTAMAB DERUXTECAN-DLNK
     Dosage: UNK UNK, CYCLIC
     Route: 065
  4. DATROWAY [Suspect]
     Active Substance: DATOPOTAMAB DERUXTECAN-DLNK
     Dosage: UNK UNK, CYCLIC
     Route: 065
  5. DATROWAY [Suspect]
     Active Substance: DATOPOTAMAB DERUXTECAN-DLNK
     Dosage: UNK UNK, CYCLIC
     Route: 065
  6. DATROWAY [Suspect]
     Active Substance: DATOPOTAMAB DERUXTECAN-DLNK
     Dosage: UNK UNK, CYCLIC
     Route: 065

REACTIONS (4)
  - Mucosal inflammation [Unknown]
  - Rhinorrhoea [Unknown]
  - Dry eye [Unknown]
  - Lacrimation increased [Unknown]
